FAERS Safety Report 8244937-4 (Version None)
Quarter: 2012Q1

REPORT INFORMATION
  Report Type: 
  Country: None (occurrence: None)
  Receive Date: 20120329
  Receipt Date: 20110923
  Transmission Date: 20120608
  Serious: No
  Sender: FDA-Public Use
  Company Number: US-MYLANLABS-2011S1020235

PATIENT
  Age: 48 Year
  Sex: Female
  Weight: 91.63 kg

DRUGS (3)
  1. FENTANYL-100 [Suspect]
     Indication: PAIN
     Dosage: CHANGES Q. 48 HOURS.
     Route: 062
  2. EFFEXOR [Concomitant]
     Indication: FIBROMYALGIA
  3. GABAPENTIN [Concomitant]
     Indication: RESTLESS LEGS SYNDROME

REACTIONS (4)
  - FATIGUE [None]
  - DRUG WITHDRAWAL SYNDROME [None]
  - DRUG INEFFECTIVE [None]
  - PAIN [None]
